FAERS Safety Report 14536439 (Version 1)
Quarter: 2018Q1

REPORT INFORMATION
  Report Type: Spontaneous
  Country: US (occurrence: US)
  Receive Date: 20180215
  Receipt Date: 20180215
  Transmission Date: 20180509
  Serious: Yes (Hospitalization)
  Sender: FDA-Public Use
  Company Number: None

PATIENT
  Age: 77 Year
  Sex: Female
  Weight: 52.6 kg

DRUGS (9)
  1. ECOTRIN [Suspect]
     Active Substance: ASPIRIN
     Indication: PROPHYLAXIS
     Route: 048
  2. THERAGRAN [Concomitant]
     Active Substance: VITAMINS
  3. CA+VIT D [Concomitant]
  4. TOPROL XL [Concomitant]
     Active Substance: METOPROLOL SUCCINATE
  5. WARFARIN [Suspect]
     Active Substance: WARFARIN
     Route: 048
  6. VITAMIN B COMPLEX [Concomitant]
     Active Substance: CYANOCOBALAMIN\DEXPANTHENOL\NIACINAMIDE\PYRIDOXINE HYDROCHLORIDE\RIBOFLAVIN 5^-PHOSPHATE SODIUM\THIAMINE HYDROCHLORIDE\VITAMIN B COMPLEX
  7. TAMBOCOR [Concomitant]
     Active Substance: FLECAINIDE ACETATE
  8. SYNTHROID [Concomitant]
     Active Substance: LEVOTHYROXINE SODIUM
  9. MTX [Concomitant]
     Active Substance: METHOTREXATE SODIUM

REACTIONS (5)
  - Anticoagulation drug level above therapeutic [None]
  - Hiatus hernia [None]
  - Haemorrhage [None]
  - Upper gastrointestinal haemorrhage [None]
  - Acquired oesophageal web [None]

NARRATIVE: CASE EVENT DATE: 20171229
